FAERS Safety Report 7190326-3 (Version None)
Quarter: 2010Q4

REPORT INFORMATION
  Report Type: 
  Country: None (occurrence: None)
  Receive Date: 20101223
  Receipt Date: 20101215
  Transmission Date: 20110411
  Serious: Yes (Death, Hospitalization, Other)
  Sender: FDA-Public Use
  Company Number: NL-CELGENEUS-114-21880-09071857

PATIENT
  Sex: Male
  Weight: 72.8 kg

DRUGS (6)
  1. REVLIMID [Suspect]
     Indication: MANTLE CELL LYMPHOMA
     Route: 048
     Dates: start: 20090616, end: 20090811
  2. COTRIM [Concomitant]
     Indication: PROPHYLAXIS
     Route: 065
     Dates: start: 20090101
  3. VALACICLOVIR [Concomitant]
     Indication: PROPHYLAXIS
     Route: 065
     Dates: start: 20090101, end: 20090213
  4. PREDNISOLONE [Concomitant]
     Route: 065
     Dates: start: 20090127
  5. CYDEXQNA [Concomitant]
     Indication: PROPHYLAXIS
     Dates: start: 20090101
  6. PANTAZOL [Concomitant]
     Indication: PROPHYLAXIS
     Route: 065
     Dates: start: 20090101

REACTIONS (4)
  - DEATH [None]
  - NEOPLASM PROGRESSION [None]
  - PANCYTOPENIA [None]
  - PYREXIA [None]
